FAERS Safety Report 25483054 (Version 1)
Quarter: 2025Q2

REPORT INFORMATION
  Report Type: Spontaneous
  Country: US (occurrence: US)
  Receive Date: 20250626
  Receipt Date: 20250626
  Transmission Date: 20250717
  Serious: Yes (Other)
  Sender: PFIZER
  Company Number: US-PFIZER INC-PV202500075422

PATIENT

DRUGS (1)
  1. CRIZOTINIB [Suspect]
     Active Substance: CRIZOTINIB
     Indication: Pancreatic carcinoma

REACTIONS (3)
  - Pancreatic carcinoma [Unknown]
  - Malignant neoplasm progression [Unknown]
  - Off label use [Unknown]
